FAERS Safety Report 8092158-0 (Version None)
Quarter: 2012Q1

REPORT INFORMATION
  Report Type: 
  Country: None (occurrence: None)
  Receive Date: 20120129
  Receipt Date: 20111107
  Transmission Date: 20120608
  Serious: No
  Sender: FDA-Public Use
  Company Number: US-ABBOTT-11P-163-0871919-00

PATIENT
  Age: 57 Year
  Sex: Female

DRUGS (6)
  1. ARMODAFINIL [Concomitant]
     Indication: FUNGAL INFECTION
  2. ESTRADIOL [Concomitant]
     Indication: HORMONE REPLACEMENT THERAPY
  3. METHOTREXATE [Concomitant]
     Indication: ARTHRITIS
     Dosage: 6 TABLETS EVERY SAT.
     Dates: start: 20090101
  4. HUMIRA [Suspect]
     Indication: PSORIATIC ARTHROPATHY
     Dates: end: 20111001
  5. ANTIBIOTIC [Concomitant]
     Indication: NASOPHARYNGITIS
  6. RANITIDINE [Concomitant]
     Indication: GASTROOESOPHAGEAL REFLUX DISEASE

REACTIONS (6)
  - HEADACHE [None]
  - COUGH [None]
  - RHINORRHOEA [None]
  - FUNGAL INFECTION [None]
  - NASOPHARYNGITIS [None]
  - SINUS HEADACHE [None]
